FAERS Safety Report 20790154 (Version 1)
Quarter: 2022Q2

REPORT INFORMATION
  Report Type: Spontaneous
  Country: US (occurrence: None)
  Receive Date: 20220505
  Receipt Date: 20220505
  Transmission Date: 20220721
  Serious: Yes (Hospitalization)
  Sender: FDA-Public Use
  Company Number: None

PATIENT
  Sex: Female

DRUGS (2)
  1. GENOTROPIN [Suspect]
     Active Substance: SOMATROPIN
     Indication: Turner^s syndrome
     Dosage: INJECT 0.6 MG INTO THE SKIN ONCE EVERY NIGHT AT BEDTIME
     Route: 058
     Dates: start: 20200630
  2. GENOTROPIN [Suspect]
     Active Substance: SOMATROPIN
     Dosage: FREQUENCY : AT BEDTIME;?
     Route: 058

REACTIONS (2)
  - Surgery [None]
  - Therapy interrupted [None]
